FAERS Safety Report 5480381-0 (Version None)
Quarter: 2007Q4

REPORT INFORMATION
  Report Type: 
  Country: None (occurrence: None)
  Receive Date: 20071009
  Receipt Date: 20071009
  Transmission Date: 20080405
  Serious: Yes (Hospitalization)
  Sender: FDA-Public Use
  Company Number: A0686527A

PATIENT
  Age: 35 Year
  Sex: Male

DRUGS (6)
  1. ALLI [Suspect]
     Indication: WEIGHT CONTROL
     Route: 048
     Dates: start: 20070620, end: 20070629
  2. CRESTOR [Concomitant]
  3. ZETIA [Concomitant]
  4. LISINOPRIL [Concomitant]
  5. WELLBUTRIN [Concomitant]
  6. XANAX [Concomitant]

REACTIONS (3)
  - ABDOMINAL PAIN [None]
  - APPENDICITIS [None]
  - POSTOPERATIVE WOUND INFECTION [None]
